FAERS Safety Report 10538905 (Version 1)
Quarter: 2014Q4

REPORT INFORMATION
  Report Type: Spontaneous
  Country: US (occurrence: US)
  Receive Date: 20141023
  Receipt Date: 20141023
  Transmission Date: 20150529
  Serious: No
  Sender: FDA-Public Use
  Company Number: US-ELI_LILLY_AND_COMPANY-US201410000832

PATIENT
  Sex: Female

DRUGS (1)
  1. HUMATROPE [Suspect]
     Active Substance: SOMATROPIN
     Indication: BLOOD GROWTH HORMONE DECREASED
     Route: 065

REACTIONS (7)
  - Muscle twitching [Unknown]
  - Lethargy [Unknown]
  - Stress [Unknown]
  - Pyrexia [Unknown]
  - Abdominal pain upper [Unknown]
  - Blood glucose decreased [Unknown]
  - Blood glucose increased [Unknown]
